FAERS Safety Report 19126850 (Version 2)
Quarter: 2021Q2

REPORT INFORMATION
  Report Type: Report from Study
  Country: US (occurrence: US)
  Receive Date: 20210412
  Receipt Date: 20210419
  Transmission Date: 20210717
  Serious: Yes (Other)
  Sender: FDA-Public Use
  Company Number: US-AMGEN-USA-20180804415

PATIENT
  Age: 69 Year
  Sex: Male

DRUGS (2)
  1. OTEZLA [Suspect]
     Active Substance: APREMILAST
     Indication: PSORIASIS
     Dosage: 30 MILLIGRAM, BID
     Route: 048
     Dates: start: 20180308
  2. OTEZLA [Suspect]
     Active Substance: APREMILAST
     Indication: DERMATITIS EXFOLIATIVE GENERALISED
     Dosage: 30 MILLIGRAM, QD
     Route: 048
     Dates: start: 20180317

REACTIONS (7)
  - Laboratory test abnormal [Recovered/Resolved]
  - Platelet count decreased [Unknown]
  - Gastric disorder [Unknown]
  - Weight decreased [Recovering/Resolving]
  - Contusion [Recovering/Resolving]
  - Diarrhoea [Recovered/Resolved]
  - Squamous cell carcinoma [Recovered/Resolved]

NARRATIVE: CASE EVENT DATE: 2018
